FAERS Safety Report 12362258 (Version 3)
Quarter: 2016Q2

REPORT INFORMATION
  Report Type: Spontaneous
  Country: US (occurrence: US)
  Receive Date: 20160512
  Receipt Date: 20160615
  Transmission Date: 20160815
  Serious: Yes (Other)
  Sender: FDA-Public Use
  Company Number: US-009507513-1605USA003756

PATIENT
  Age: 19 Year
  Sex: Female

DRUGS (1)
  1. NEXPLANON [Suspect]
     Active Substance: ETONOGESTREL
     Indication: CONTRACEPTION
     Dosage: STRENGTH 68 MG, 1 ROD/ EVERY 3 YEARS
     Route: 059
     Dates: start: 2016

REACTIONS (6)
  - Malaise [Recovering/Resolving]
  - Stress [Recovering/Resolving]
  - Seizure [Recovering/Resolving]
  - Gastric disorder [Recovering/Resolving]
  - Viral infection [Recovering/Resolving]
  - Nausea [Recovering/Resolving]

NARRATIVE: CASE EVENT DATE: 2016
